FAERS Safety Report 8395171-9 (Version None)
Quarter: 2012Q2

REPORT INFORMATION
  Report Type: 
  Country: None (occurrence: None)
  Receive Date: 20120530
  Receipt Date: 20120521
  Transmission Date: 20120825
  Serious: Yes (Hospitalization)
  Sender: FDA-Public Use
  Company Number: PL-PERRIGO-12PL004390

PATIENT
  Age: 8 Year
  Sex: Female

DRUGS (6)
  1. PENTASA [Suspect]
     Indication: COLITIS ULCERATIVE
     Dosage: UNKNOWN, UNKNOWN
     Route: 054
  2. MESALAMINE [Suspect]
     Indication: COLITIS ULCERATIVE
     Dosage: UNKNOWN, UNKNOWN
     Route: 054
  3. HYDROCORTISONE [Concomitant]
     Indication: COLITIS ULCERATIVE
     Dosage: UNKNOWN, UNKNOWN
     Route: 054
  4. MESALAMINE [Suspect]
     Indication: COLITIS ULCERATIVE
     Dosage: UNKNOWN, UNKNOWN
     Route: 065
  5. METRONIDAZOLE [Concomitant]
     Indication: COLITIS ULCERATIVE
     Dosage: UNKNOWN, UNKNOWN
     Route: 065
  6. DICOFLOR [Concomitant]
     Indication: COLITIS ULCERATIVE
     Dosage: UNKNOWN, UNKNOWN
     Route: 065

REACTIONS (4)
  - MUCOUS STOOLS [None]
  - DIARRHOEA HAEMORRHAGIC [None]
  - EOSINOPHILIC COLITIS [None]
  - ABDOMINAL PAIN [None]
